FAERS Safety Report 9865321 (Version 1)
Quarter: 2014Q1

REPORT INFORMATION
  Report Type: Spontaneous
  Country: US (occurrence: US)
  Receive Date: 20140203
  Receipt Date: 20140203
  Transmission Date: 20141002
  Serious: No
  Sender: FDA-Public Use
  Company Number: US-ALLERGAN-1301363US

PATIENT
  Age: 83 Year
  Sex: Female

DRUGS (4)
  1. RESTASIS [Suspect]
     Indication: SJOGREN^S SYNDROME
     Dosage: UNK UNK, QHS
     Route: 047
  2. RESTASIS [Suspect]
     Indication: DRY EYE
  3. AMLODIPINE [Concomitant]
     Indication: HYPERTENSION
     Dosage: 5 MG, QD
     Route: 048
  4. OMEGA XL [Concomitant]
     Indication: BACK PAIN
     Dosage: UNK
     Route: 048

REACTIONS (3)
  - Incorrect dose administered [Unknown]
  - Inappropriate schedule of drug administration [Unknown]
  - Vision blurred [Unknown]
